FAERS Safety Report 7830300-4 (Version None)
Quarter: 2011Q4

REPORT INFORMATION
  Report Type: 
  Country: None (occurrence: None)
  Receive Date: 20111021
  Receipt Date: 20111007
  Transmission Date: 20120403
  Serious: Yes (Other)
  Sender: FDA-Public Use
  Company Number: US-JNJFOC-20111008976

PATIENT
  Age: 4 Year
  Sex: Male

DRUGS (1)
  1. TOPAMAX [Suspect]
     Indication: MATERNAL EXPOSURE DURING PREGNANCY
     Route: 064
     Dates: start: 20020101, end: 20040101

REACTIONS (6)
  - AGGRESSION [None]
  - ANXIETY [None]
  - RESTLESSNESS [None]
  - UNEVALUABLE EVENT [None]
  - MATERNAL EXPOSURE DURING PREGNANCY [None]
  - DISTRACTIBILITY [None]
